FAERS Safety Report 8837850 (Version 1)
Quarter: 2012Q4

REPORT INFORMATION
  Report Type: 
  Country: US (occurrence: US)
  Receive Date: 20121012
  Receipt Date: 20121012
  Transmission Date: 20130627
  Serious: No
  Sender: FDA-Public Use
  Company Number: US-009507513-1210USA002906

PATIENT
  Sex: Male

DRUGS (8)
  1. VICTRELIS [Suspect]
     Indication: HEPATITIS C
     Dosage: 4 DF, q8h
     Dates: start: 201202
  2. REBETOL [Suspect]
     Indication: HEPATITIS C
     Dosage: UNK
  3. PEGASYS [Suspect]
     Indication: HEPATITIS C
     Dosage: UNK
  4. BENAZEPRIL HYDROCHLORIDE [Concomitant]
  5. VITAMIN D [Concomitant]
  6. CELEXA [Concomitant]
  7. ATIVAN [Concomitant]
  8. PRILOSEC [Concomitant]

REACTIONS (6)
  - Oropharyngeal pain [Unknown]
  - Dyspnoea [Unknown]
  - Anxiety [Unknown]
  - Insomnia [Unknown]
  - Anaemia [Unknown]
  - Inappropriate schedule of drug administration [Unknown]
